FAERS Safety Report 13183308 (Version 1)
Quarter: 2017Q1

REPORT INFORMATION
  Report Type: Spontaneous
  Country: US (occurrence: US)
  Receive Date: 20170203
  Receipt Date: 20170203
  Transmission Date: 20170428
  Serious: Yes (Hospitalization)
  Sender: FDA-Public Use
  Company Number: US-ASTRAZENECA-2017SE11284

PATIENT
  Age: 20887 Day
  Sex: Male
  Weight: 93 kg

DRUGS (5)
  1. OTHER MEDCIATION [Concomitant]
     Indication: BLOOD CHOLESTEROL
  2. OTHER MEDCIATION [Concomitant]
     Indication: DIABETES MELLITUS
  3. BRILINTA [Suspect]
     Active Substance: TICAGRELOR
     Indication: ACUTE MYOCARDIAL INFARCTION
     Route: 048
     Dates: start: 20151108
  4. OTHER MEDCIATION [Concomitant]
     Indication: CARDIAC DISORDER
  5. ASPIRIN. [Concomitant]
     Active Substance: ASPIRIN
     Indication: PROPHYLAXIS
     Route: 048
     Dates: start: 20151108

REACTIONS (15)
  - Blood glucose increased [Recovered/Resolved]
  - Nephrolithiasis [Recovered/Resolved]
  - Tibia fracture [Unknown]
  - Tooth injury [Recovered/Resolved]
  - Weight fluctuation [Not Recovered/Not Resolved]
  - Weight increased [Unknown]
  - Product use issue [Unknown]
  - Fracture [Unknown]
  - Atypical pneumonia [Unknown]
  - Off label use [Not Recovered/Not Resolved]
  - Abdominal pain [Recovered/Resolved]
  - Upper respiratory tract infection [Unknown]
  - Nasopharyngitis [Not Recovered/Not Resolved]
  - Asthma [Recovered/Resolved]
  - Stress fracture [Unknown]

NARRATIVE: CASE EVENT DATE: 20151230
